FAERS Safety Report 4351770-2 (Version None)
Quarter: 2004Q2

REPORT INFORMATION
  Report Type: 
  Country: None (occurrence: None)
  Receive Date: 20040503
  Receipt Date: 20040419
  Transmission Date: 20050107
  Serious: Yes (Hospitalization)
  Sender: FDA-Public Use
  Company Number: GR-GLAXOSMITHKLINE-B0330555A

PATIENT
  Age: 3 Year
  Sex: Female

DRUGS (1)
  1. AUGMENTIN [Suspect]
     Indication: BRONCHITIS
     Dosage: 5ML THREE TIMES PER DAY
     Route: 048
     Dates: start: 20040410, end: 20040417

REACTIONS (2)
  - OEDEMA [None]
  - RASH GENERALISED [None]
